FAERS Safety Report 6935851-2 (Version None)
Quarter: 2010Q3

REPORT INFORMATION
  Report Type: 
  Country: None (occurrence: None)
  Receive Date: 20100823
  Receipt Date: 20100810
  Transmission Date: 20110219
  Serious: Yes (Hospitalization, Other)
  Sender: FDA-Public Use
  Company Number: PHHY2010US45949

PATIENT
  Sex: Male

DRUGS (1)
  1. EXJADE [Suspect]
     Indication: MULTIPLE MYELOMA
     Dosage: 2500 MG, QD
     Route: 048
     Dates: end: 20100501

REACTIONS (3)
  - ASPARTATE AMINOTRANSFERASE INCREASED [None]
  - SERUM FERRITIN INCREASED [None]
  - TRANSPLANT [None]
